FAERS Safety Report 7952086-5 (Version None)
Quarter: 2011Q4

REPORT INFORMATION
  Report Type: 
  Country: None (occurrence: None)
  Receive Date: 20111201
  Receipt Date: 20111124
  Transmission Date: 20120403
  Serious: Yes (Hospitalization, Disabling)
  Sender: FDA-Public Use
  Company Number: PHHO2011IT07932

PATIENT
  Sex: Female
  Weight: 70 kg

DRUGS (6)
  1. PRAVASTATIN [Concomitant]
  2. RAMIPRIL [Concomitant]
  3. TASIGNA [Suspect]
     Indication: CHRONIC MYELOID LEUKAEMIA
     Dosage: 800 MG, DAILY
     Route: 048
     Dates: start: 20080207, end: 20110426
  4. PLAVIX [Concomitant]
  5. RANITIDINE [Concomitant]
  6. FINASTID [Concomitant]

REACTIONS (2)
  - PERIPHERAL ISCHAEMIA [None]
  - CHRONIC MYELOID LEUKAEMIA [None]
